FAERS Safety Report 8365845-4 (Version None)
Quarter: 2012Q2

REPORT INFORMATION
  Report Type: 
  Country: None (occurrence: None)
  Receive Date: 20120517
  Receipt Date: 20120507
  Transmission Date: 20120825
  Serious: Yes (Hospitalization)
  Sender: FDA-Public Use
  Company Number: ES-AMGEN-ESPSP2012029179

PATIENT
  Age: 43 Year
  Sex: Male

DRUGS (4)
  1. METHOTREXATE SODIUM [Interacting]
     Indication: PSORIASIS
     Dosage: 7.5 MG, WEEKLY
     Route: 065
     Dates: start: 20110502, end: 20110808
  2. ENBREL [Suspect]
     Indication: PSORIASIS
     Dosage: 50 MG, WEEKLY
     Route: 065
     Dates: start: 20110427, end: 20110726
  3. DAIVOBET [Concomitant]
     Dosage: UNK
  4. ACFOL [Concomitant]
     Dosage: 5 MG, WEEKLY
     Route: 065
     Dates: start: 20110502, end: 20110808

REACTIONS (3)
  - DRUG INTERACTION [None]
  - PULMONARY TUBERCULOSIS [None]
  - PLEURAL EFFUSION [None]
